FAERS Safety Report 5243755-9 (Version None)
Quarter: 2007Q1

REPORT INFORMATION
  Report Type: 
  Country: None (occurrence: None)
  Receive Date: 20070213
  Receipt Date: 20070129
  Transmission Date: 20070707
  Serious: No
  Sender: FDA-Public Use
  Company Number: WSDF_00610

PATIENT
  Sex: Female

DRUGS (1)
  1. WINRHO SDF [Suspect]

REACTIONS (1)
  - INTRAVASCULAR HAEMOLYSIS [None]
